FAERS Safety Report 24671078 (Version 1)
Quarter: 2024Q4

REPORT INFORMATION
  Report Type: Report from Study
  Country: US (occurrence: US)
  Receive Date: 20241127
  Receipt Date: 20241127
  Transmission Date: 20250115
  Serious: Yes (Death, Other)
  Sender: EMD SERONO INC
  Company Number: US-Merck Healthcare KGaA-2024062192

PATIENT
  Age: 71 Year
  Sex: Female

DRUGS (2)
  1. REBIF [Suspect]
     Active Substance: INTERFERON BETA-1A
     Indication: Multiple sclerosis
     Dates: start: 20030423
  2. REBIF [Suspect]
     Active Substance: INTERFERON BETA-1A

REACTIONS (3)
  - Choking [Fatal]
  - Aspiration [Fatal]
  - Brain neoplasm [Unknown]

NARRATIVE: CASE EVENT DATE: 20241001
